FAERS Safety Report 21379872 (Version 1)
Quarter: 2022Q3

REPORT INFORMATION
  Report Type: Report from Study
  Country: CZ (occurrence: CZ)
  Receive Date: 20220927
  Receipt Date: 20220927
  Transmission Date: 20221027
  Serious: Yes (Hospitalization)
  Sender: FDA-Public Use
  Company Number: CZ-MYLANLABS-2022M1096504

PATIENT
  Sex: Male

DRUGS (1)
  1. HULIO [Suspect]
     Active Substance: ADALIMUMAB-FKJP
     Indication: Ankylosing spondylitis
     Dosage: 40 MILLIGRAM, BIMONTHLY
     Route: 065
     Dates: start: 20210519

REACTIONS (1)
  - Hip arthroplasty [Recovered/Resolved]

NARRATIVE: CASE EVENT DATE: 20220510
